FAERS Safety Report 23114739 (Version 2)
Quarter: 2023Q4

REPORT INFORMATION
  Report Type: Spontaneous
  Country: GB (occurrence: None)
  Receive Date: 20231027
  Receipt Date: 20231121
  Transmission Date: 20240110
  Serious: Yes (Other)
  Sender: FDA-Public Use
  Company Number: GB-ROCHE-3441432

PATIENT
  Age: 74 Year
  Sex: Male

DRUGS (1)
  1. VABYSMO [Suspect]
     Active Substance: FARICIMAB\FARICIMAB-SVOA
     Indication: Neovascular age-related macular degeneration
     Dosage: RE: 03/MAR/2023, LE: 02/MAR/2023
     Route: 065

REACTIONS (2)
  - Idiopathic orbital inflammation [Unknown]
  - Iridocyclitis [Unknown]

NARRATIVE: CASE EVENT DATE: 20231010
